FAERS Safety Report 8943404 (Version 3)
Quarter: 2012Q4

REPORT INFORMATION
  Report Type: 
  Country: US (occurrence: US)
  Receive Date: 20121204
  Receipt Date: 20121226
  Transmission Date: 20130627
  Serious: Yes (Death, Other)
  Sender: FDA-Public Use
  Company Number: US-JNJFOC-20121115006

PATIENT
  Sex: Female

DRUGS (18)
  1. DOXORUBICIN [Suspect]
     Indication: BREAST CANCER
     Dosage: every 2 weeks for 4 or 6 cycles
     Route: 042
  2. DOXORUBICIN [Suspect]
     Indication: BREAST CANCER
     Dosage: every 2 weeks for 4 or 6 cycles
     Route: 042
  3. DOXORUBICIN [Suspect]
     Indication: BREAST CANCER
     Dosage: every 2 weeks for 4 or 6 cycles
     Route: 042
  4. DOXORUBICIN [Suspect]
     Indication: BREAST CANCER
     Dosage: every 2 weeks for 4 or 6 cycles
     Route: 042
  5. DOXORUBICIN [Suspect]
     Indication: BREAST CANCER
     Dosage: every 2 weeks for 4 or 6 cycles
     Route: 042
  6. DOXORUBICIN [Suspect]
     Indication: BREAST CANCER
     Dosage: every 2 weeks for 4 or 6 cycles
     Route: 042
  7. DOXORUBICIN [Suspect]
     Indication: BREAST CANCER
     Dosage: every 2 weeks for 4 or 6 cycles
     Route: 065
  8. DOXORUBICIN [Suspect]
     Indication: BREAST CANCER
     Dosage: every 2 weeks for 4 or 6 cycles
     Route: 065
  9. DOXORUBICIN [Suspect]
     Indication: BREAST CANCER
     Dosage: every 2 weeks for 4 or 6 cycles
     Route: 065
  10. DOXORUBICIN [Suspect]
     Indication: BREAST CANCER
     Dosage: every 2 weeks for 4 or 6 cycles
     Route: 065
  11. DOXORUBICIN [Suspect]
     Indication: BREAST CANCER
     Dosage: every 2 weeks for 4 or 6 cycles
     Route: 065
  12. DOXORUBICIN [Suspect]
     Indication: BREAST CANCER
     Dosage: every 2 weeks for 4 or 6 cycles
     Route: 065
  13. CYCLOPHOSPHAMIDE [Suspect]
     Indication: BREAST CANCER
     Dosage: every 2 weeks for 4 or 6 cycles
     Route: 065
  14. CYCLOPHOSPHAMIDE [Suspect]
     Indication: BREAST CANCER
     Dosage: every 2 weeks for 4 or 6 cycles
     Route: 065
  15. CYCLOPHOSPHAMIDE [Suspect]
     Indication: BREAST CANCER
     Dosage: every 2 weeks for 4 or 6 cycles
     Route: 065
  16. CYCLOPHOSPHAMIDE [Suspect]
     Indication: BREAST CANCER
     Dosage: every 2 weeks for 4 or 6 cycles
     Route: 065
  17. CYCLOPHOSPHAMIDE [Suspect]
     Indication: BREAST CANCER
     Dosage: every 2 weeks for 4 or 6 cycles
     Route: 065
  18. CYCLOPHOSPHAMIDE [Suspect]
     Indication: BREAST CANCER
     Dosage: every 2 weeks for 4 or 6 cycles
     Route: 065

REACTIONS (10)
  - Acute myeloid leukaemia [Fatal]
  - Myelodysplastic syndrome [Unknown]
  - Left ventricular dysfunction [Unknown]
  - Restrictive cardiomyopathy [Unknown]
  - Haemoglobin abnormal [Unknown]
  - Neutropenia [Unknown]
  - Febrile neutropenia [Unknown]
  - Platelet toxicity [Unknown]
  - Peripheral sensory neuropathy [Unknown]
  - Peripheral motor neuropathy [Unknown]
